FAERS Safety Report 10380718 (Version 2)
Quarter: 2014Q3

REPORT INFORMATION
  Report Type: Spontaneous
  Country: PL (occurrence: PL)
  Receive Date: 20140813
  Receipt Date: 20140813
  Transmission Date: 20150326
  Serious: Yes (Death, Life-Threatening)
  Sender: FDA-Public Use
  Company Number: PL-SA-2014SA063630

PATIENT
  Age: 78 Year
  Sex: Female
  Weight: 100 kg

DRUGS (6)
  1. BISOCARD [Concomitant]
     Active Substance: BISOPROLOL
     Route: 048
  2. CLEXANE [Suspect]
     Active Substance: ENOXAPARIN SODIUM
     Indication: EMBOLISM VENOUS
     Dosage: FREQUENCY:2X80 MG,AND 1X80 MG
     Route: 058
     Dates: start: 20140405, end: 20140512
  3. MORFINA [Concomitant]
     Route: 058
  4. INSULIN [Concomitant]
     Active Substance: INSULIN NOS
     Indication: DIABETES MELLITUS MANAGEMENT
     Route: 058
  5. MATRIFEN [Concomitant]
     Active Substance: FENTANYL
     Route: 062
  6. OXYCODONE [Concomitant]
     Active Substance: OXYCODONE
     Route: 048

REACTIONS (1)
  - Heparin-induced thrombocytopenia [Fatal]

NARRATIVE: CASE EVENT DATE: 20140405
